FAERS Safety Report 8307442-2 (Version None)
Quarter: 2012Q1

REPORT INFORMATION
  Report Type: 
  Country: None (occurrence: None)
  Receive Date: 20120327
  Receipt Date: 20090828
  Transmission Date: 20120608
  Serious: Yes (Hospitalization, Other)
  Sender: FDA-Public Use
  Company Number: PHEH2009US07570

PATIENT
  Sex: Male

DRUGS (1)
  1. GLEEVEC [Suspect]
     Indication: EOSINOPHILIA
     Dosage: 100 MG, QD, ORAL
     Route: 048
     Dates: start: 20080401, end: 20090709

REACTIONS (1)
  - CONVULSION [None]
